FAERS Safety Report 9241454 (Version 1)
Quarter: 2013Q2

REPORT INFORMATION
  Report Type: Spontaneous
  Country: US (occurrence: US)
  Receive Date: 20130419
  Receipt Date: 20130419
  Transmission Date: 20140414
  Serious: No
  Sender: FDA-Public Use
  Company Number: US-BIOGENIDEC-2013BI034531

PATIENT
  Age: 35 Year
  Sex: Female

DRUGS (3)
  1. AVONEX [Suspect]
     Indication: MULTIPLE SCLEROSIS
     Route: 030
     Dates: start: 20130201, end: 20130410
  2. MORPHINE [Concomitant]
     Indication: PAIN
     Route: 048
  3. PERCOCET [Concomitant]
     Indication: PAIN
     Route: 048
     Dates: start: 20130301

REACTIONS (3)
  - Injection site swelling [Not Recovered/Not Resolved]
  - Gait disturbance [Recovered/Resolved]
  - Gastroenteritis viral [Not Recovered/Not Resolved]
